FAERS Safety Report 4663413-9 (Version None)
Quarter: 2005Q2

REPORT INFORMATION
  Report Type: 
  Country: None (occurrence: None)
  Receive Date: 20050511
  Receipt Date: 20050126
  Transmission Date: 20051028
  Serious: Yes (Other)
  Sender: FDA-Public Use
  Company Number: 393947

PATIENT
  Age: 22 Year
  Sex: Female
  Weight: 76.7 kg

DRUGS (3)
  1. PEGASYS [Suspect]
     Indication: HEPATITIS C
     Dosage: 1 PER WEEK; OTHER
     Route: 050
     Dates: start: 20040903
  2. COPEGUS [Suspect]
     Indication: HEPATITIS C
     Dosage: DOSE FORM DAILY; ORAL
     Route: 048
     Dates: start: 20040903
  3. GLIPIZIDE [Concomitant]

REACTIONS (14)
  - BLOOD GLUCOSE DECREASED [None]
  - BLOOD GLUCOSE INCREASED [None]
  - BLOOD POTASSIUM DECREASED [None]
  - COUGH [None]
  - DISEASE RECURRENCE [None]
  - EAR INFECTION [None]
  - EAR PAIN [None]
  - FATIGUE [None]
  - NASOPHARYNGITIS [None]
  - NAUSEA [None]
  - OTORRHOEA [None]
  - TREMOR [None]
  - VAGINAL CYST [None]
  - WEIGHT DECREASED [None]
